FAERS Safety Report 9767548 (Version 1)
Quarter: 2013Q4

REPORT INFORMATION
  Report Type: Report from Study
  Country: US (occurrence: US)
  Receive Date: 20131217
  Receipt Date: 20131217
  Transmission Date: 20140711
  Serious: Yes (Other)
  Sender: FDA-Public Use
  Company Number: US-ROCHE-1318721

PATIENT
  Sex: Female

DRUGS (29)
  1. OMALIZUMAB [Suspect]
     Indication: ASTHMA
     Route: 065
     Dates: start: 20110607
  2. OMALIZUMAB [Suspect]
     Dosage: MONTHLY
     Route: 065
     Dates: start: 20131203, end: 20131203
  3. NAPROSYN [Suspect]
     Indication: PRODUCT USED FOR UNKNOWN INDICATION
     Dosage: 2 TIMES DAILY
     Route: 048
     Dates: start: 20130410
  4. NAPROSYN [Suspect]
     Route: 048
     Dates: start: 20131203
  5. PHENERGAN [Concomitant]
     Dosage: PER/ML SOLUTIONS 4 TIMES DAILY
     Route: 065
  6. SOLU-MEDROL [Concomitant]
     Dosage: BEFORE AND AFTER LIPID INFUSION
     Route: 065
  7. ALBUTEROL SULFATE [Concomitant]
     Dosage: PER3ML 0.083%NEB SOL 4TIMES DAILY PRN
     Route: 065
  8. PEPCID [Concomitant]
     Dosage: 1 TWICE DAILY
     Route: 048
  9. ZOFRAN [Concomitant]
     Dosage: 4MG/5ML SOLUTION;  1-2 Q4-6 HR AS NEEDED
     Route: 065
  10. WELLBUTRIN XL [Concomitant]
     Dosage: 1 EVERY MORNING
     Route: 065
  11. ATIVAN [Concomitant]
     Dosage: 1/2TAB- 1TAB  THREE TIMES DAILY
     Route: 065
  12. RESTASIS [Concomitant]
     Dosage: EMULSION TWICE DAILY
     Route: 065
  13. CODEINE SULFATE [Concomitant]
     Dosage: 2 TABLETS Q8H AS NEEDED
     Route: 048
  14. PROLIA [Concomitant]
     Dosage: 60MG/ML SOLUTION Q 6 MONTHS
     Route: 058
  15. SINGULAIR [Concomitant]
     Dosage: DAILY
     Route: 048
  16. PROTONIX (UNITED STATES) [Concomitant]
     Dosage: 40 MG PER SOLUTION AT BEDTIME
     Route: 042
  17. EFFEXOR XR [Concomitant]
     Dosage: 1 EVERY MORNING
     Route: 048
  18. EFFEXOR XR [Concomitant]
     Dosage: 1 EVERY MORNING
     Route: 048
  19. VITAMIN B12 [Concomitant]
     Dosage: PER 15 ML LIQUID; ONCE A MONTH
     Route: 048
  20. LOVENOX [Concomitant]
     Dosage: PER 0.8 ML SOLUTIONS DAILY
     Route: 058
  21. LAMICTAL [Concomitant]
     Dosage: BEDTIME
     Route: 048
  22. LAMICTAL [Concomitant]
     Dosage: EVERY MORNING
     Route: 048
  23. BENADRYL (UNITED STATES) [Concomitant]
     Dosage: 4 TIMES DAILY
     Route: 065
  24. NASONEX [Concomitant]
     Dosage: PER ACT NASAL AS DIRECTED
     Route: 065
  25. ADDERALL XR [Concomitant]
     Dosage: DAILY
     Route: 048
  26. DULERA [Concomitant]
     Dosage: 200-5MCG PER ACT 2 TIMES DAILY
     Route: 055
  27. TUDORZA PRESSAIR [Concomitant]
     Dosage: PER ACT 2 TIMES DAILY
     Route: 055
  28. LUPRON DEPOT [Concomitant]
     Dosage: (PED) Q 3 MONTHS
     Route: 030
  29. PROCARDIA XL [Concomitant]
     Dosage: Q AM
     Route: 048

REACTIONS (8)
  - Rib fracture [Unknown]
  - Deep vein thrombosis [Unknown]
  - Cough [Unknown]
  - Osteoporosis [Unknown]
  - Bone contusion [Unknown]
  - Asthma [Unknown]
  - Musculoskeletal chest pain [Unknown]
  - Bronchitis [Unknown]
